FAERS Safety Report 15584293 (Version 2)
Quarter: 2020Q1

REPORT INFORMATION
  Report Type: Spontaneous
  Country: US (occurrence: US)
  Receive Date: 20181105
  Receipt Date: 20200224
  Transmission Date: 20200409
  Serious: No
  Sender: FDA-Public Use
  Company Number: US-SA-2018SA100645

PATIENT
  Age: 30 Year
  Sex: Male

DRUGS (1)
  1. AUBAGIO [Suspect]
     Active Substance: TERIFLUNOMIDE
     Indication: MULTIPLE SCLEROSIS
     Dosage: 14 MG,QD
     Route: 048
     Dates: start: 20180329, end: 2020

REACTIONS (8)
  - Discomfort [Unknown]
  - Urinary incontinence [Unknown]
  - Anal incontinence [Unknown]
  - Insomnia [Unknown]
  - Hypoaesthesia [Unknown]
  - Product dose omission [Unknown]
  - Gastrointestinal disorder [Not Recovered/Not Resolved]
  - Pain [Unknown]

NARRATIVE: CASE EVENT DATE: 2020
